FAERS Safety Report 26151010 (Version 1)
Quarter: 2025Q4

REPORT INFORMATION
  Report Type: Spontaneous
  Country: CN (occurrence: CN)
  Receive Date: 20251212
  Receipt Date: 20251212
  Transmission Date: 20260118
  Serious: Yes (Hospitalization)
  Sender: MERCK SHARP & DOHME LLC
  Company Number: CN-009507513-2358171

PATIENT
  Age: 69 Year
  Sex: Female

DRUGS (4)
  1. PEMBROLIZUMAB [Suspect]
     Active Substance: PEMBROLIZUMAB
     Indication: Oropharyngeal cancer
     Dosage: TIME INTERVAL: CYCLICAL: 200 MG, FOUR CYCLES
     Dates: start: 202307, end: 202310
  2. PEMBROLIZUMAB [Suspect]
     Active Substance: PEMBROLIZUMAB
     Indication: Oropharyngeal cancer
     Dates: start: 20240108
  3. FLUOROURACIL [Suspect]
     Active Substance: FLUOROURACIL
     Indication: Oropharyngeal cancer
     Dosage: 3.0 G ON DAY 1, Q3W, FOUR CYCLES
     Dates: start: 202307, end: 202310
  4. CISPLATIN [Suspect]
     Active Substance: CISPLATIN
     Indication: Oropharyngeal cancer
     Dosage: TIME INTERVAL: CYCLICAL: 40 MG, FOUR CYCLES ON DAYS 1-2, Q3W
     Dates: start: 202307, end: 202310

REACTIONS (2)
  - Myelin oligodendrocyte glycoprotein antibody-associated disease [Recovering/Resolving]
  - Product use issue [Unknown]

NARRATIVE: CASE EVENT DATE: 20230701
